FAERS Safety Report 7141826-3 (Version None)
Quarter: 2010Q4

REPORT INFORMATION
  Report Type: 
  Country: None (occurrence: None)
  Receive Date: 20101207
  Receipt Date: 20101129
  Transmission Date: 20110411
  Serious: Yes (Other)
  Sender: FDA-Public Use
  Company Number: CA-ROCHE-745499

PATIENT
  Sex: Male
  Weight: 97.1 kg

DRUGS (2)
  1. BEVACIZUMAB [Suspect]
     Indication: COLORECTAL CANCER
     Dosage: FORM: INFUSION
     Route: 042
     Dates: start: 20091022
  2. BEVACIZUMAB [Suspect]
     Route: 042
     Dates: start: 20101027, end: 20101027

REACTIONS (1)
  - LUNG NEOPLASM [None]
